FAERS Safety Report 7753622-4 (Version None)
Quarter: 2011Q3

REPORT INFORMATION
  Report Type: 
  Country: None (occurrence: None)
  Receive Date: 20110915
  Receipt Date: 20110912
  Transmission Date: 20111222
  Serious: Yes (Hospitalization)
  Sender: FDA-Public Use
  Company Number: DE-GLAXOSMITHKLINE-B0667613A

PATIENT
  Sex: Male
  Weight: 80 kg

DRUGS (4)
  1. DICLOFENAC SODIUM [Concomitant]
     Dosage: 10TAB PER DAY
     Route: 065
     Dates: start: 20100720, end: 20100720
  2. FLUOXETINE HCL [Concomitant]
     Dosage: 10TAB PER DAY
     Route: 065
     Dates: start: 20100720, end: 20100720
  3. IBUPROFEN [Concomitant]
     Dosage: 10TAB PER DAY
     Route: 065
     Dates: start: 20100720, end: 20100720
  4. NARATRIPTAN [Suspect]
     Indication: PRODUCT USED FOR UNKNOWN INDICATION
     Dosage: 2TAB PER DAY
     Route: 065
     Dates: start: 20100720, end: 20100720

REACTIONS (1)
  - SUICIDE ATTEMPT [None]
